FAERS Safety Report 10211158 (Version 1)
Quarter: 2014Q2

REPORT INFORMATION
  Report Type: Spontaneous
  Country: BR (occurrence: BR)
  Receive Date: 20140602
  Receipt Date: 20140602
  Transmission Date: 20141212
  Serious: Yes (Hospitalization)
  Sender: FDA-Public Use
  Company Number: BR-SA-2014SA065197

PATIENT
  Age: 68 Year
  Sex: Female

DRUGS (11)
  1. METHOTREXATE [Suspect]
     Indication: RHEUMATOID ARTHRITIS
     Route: 065
     Dates: start: 200801, end: 201001
  2. METHOTREXATE [Interacting]
     Indication: RHEUMATOID ARTHRITIS
     Route: 065
     Dates: start: 201001, end: 2011
  3. LEFLUNOMIDE [Suspect]
     Indication: SYNOVITIS
     Route: 065
     Dates: start: 201001, end: 2011
  4. ASPIRIN [Interacting]
     Indication: ACUTE MYOCARDIAL INFARCTION
     Route: 065
     Dates: start: 201012
  5. OMEPRAZOLE [Interacting]
     Indication: ACUTE MYOCARDIAL INFARCTION
     Route: 065
     Dates: start: 201012
  6. FOLIC ACID [Concomitant]
  7. PREDNISONE [Concomitant]
     Indication: SYNOVITIS
     Dates: start: 201001
  8. PREDNISONE [Concomitant]
     Indication: SYNOVITIS
     Dosage: DOSE INCREASED
  9. CLOPIDOGREL [Concomitant]
     Indication: ACUTE MYOCARDIAL INFARCTION
     Dates: start: 201012
  10. ISOSORBIDE [Concomitant]
     Indication: ACUTE MYOCARDIAL INFARCTION
     Dates: start: 201012
  11. SIMVASTATIN [Concomitant]
     Indication: ACUTE MYOCARDIAL INFARCTION
     Dates: start: 201012

REACTIONS (8)
  - Leukopenia [Recovered/Resolved]
  - Chills [Recovered/Resolved]
  - Pyrexia [Recovered/Resolved]
  - Dyspnoea exertional [Recovered/Resolved]
  - Fatigue [Recovered/Resolved]
  - Decreased appetite [Recovered/Resolved]
  - Cough [Recovered/Resolved]
  - Drug interaction [Unknown]
